FAERS Safety Report 24709158 (Version 2)
Quarter: 2025Q1

REPORT INFORMATION
  Report Type: Spontaneous
  Country: US (occurrence: US)
  Receive Date: 20241208
  Receipt Date: 20250305
  Transmission Date: 20250409
  Serious: No
  Sender: INSUD PHARMA
  Company Number: US-INSUD PHARMA-2411US08796

PATIENT

DRUGS (2)
  1. ESTRADIOL [Suspect]
     Active Substance: ESTRADIOL
     Indication: Menopause
     Route: 061
  2. ESTRADIOL [Suspect]
     Active Substance: ESTRADIOL
     Indication: Hot flush

REACTIONS (6)
  - Abdominal distension [Unknown]
  - Drug ineffective [Unknown]
  - Insomnia [Unknown]
  - Breast tenderness [Unknown]
  - Anxiety [Unknown]
  - Feeling abnormal [Recovering/Resolving]
